FAERS Safety Report 8801022 (Version 2)
Quarter: 2012Q4

REPORT INFORMATION
  Report Type: 
  Country: CA (occurrence: CA)
  Receive Date: 20120920
  Receipt Date: 20121018
  Transmission Date: 20130627
  Serious: Yes (Other)
  Sender: FDA-Public Use
  Company Number: CA-ROCHE-1126245

PATIENT
  Age: 38 None
  Sex: Female

DRUGS (8)
  1. XOLAIR [Suspect]
     Indication: ASTHMA
     Route: 058
     Dates: start: 20111026
  2. SYMBICORT [Concomitant]
  3. FLOVENT [Concomitant]
  4. SPIRIVA [Concomitant]
  5. SINGULAIR [Concomitant]
  6. VENTOLIN [Concomitant]
  7. TORADOL [Concomitant]
  8. CALCIUM [Concomitant]

REACTIONS (9)
  - Lower respiratory tract infection [Unknown]
  - Irritability [Recovering/Resolving]
  - Musculoskeletal chest pain [Unknown]
  - Pleuritic pain [Unknown]
  - Asthma [Unknown]
  - Nasal congestion [Unknown]
  - Stress [Unknown]
  - Fatigue [Unknown]
  - Respiratory failure [Unknown]
